FAERS Safety Report 8524539-2 (Version None)
Quarter: 2012Q3

REPORT INFORMATION
  Report Type: 
  Country: None (occurrence: None)
  Receive Date: 20120720
  Receipt Date: 20120202
  Transmission Date: 20120928
  Serious: Yes (Hospitalization)
  Sender: FDA-Public Use
  Company Number: GR-JNJFOC-20120706116

PATIENT
  Age: 63 Year
  Sex: Male

DRUGS (4)
  1. REMICADE [Suspect]
     Route: 042
  2. REMICADE [Suspect]
     Indication: ANKYLOSING SPONDYLITIS
     Route: 042
  3. REMICADE [Suspect]
     Dosage: START DATE : 1 YEAR AGO FROM THE TIME OF THE REPORT
     Route: 042
     Dates: start: 20110101
  4. REMICADE [Suspect]
     Indication: CROHN'S DISEASE
     Dosage: START DATE : 1 YEAR AGO FROM THE TIME OF THE REPORT
     Route: 042
     Dates: start: 20110101

REACTIONS (4)
  - COUGH [None]
  - VOMITING [None]
  - DRUG HYPERSENSITIVITY [None]
  - INFUSION RELATED REACTION [None]
